FAERS Safety Report 17201620 (Version 1)
Quarter: 2020Q1

REPORT INFORMATION
  Report Type: Spontaneous
  Country: US (occurrence: US)
  Receive Date: 20191224
  Receipt Date: 20191224
  Transmission Date: 20200409
  Serious: Yes (Life-Threatening, Hospitalization, Other)
  Sender: FDA-Public Use
  Company Number: None

PATIENT
  Age: 64 Year
  Sex: Male

DRUGS (4)
  1. TACROLIMUS 1 MG CAPSULE [Concomitant]
     Dates: start: 20190905
  2. TACROLIMUS 5 MG CAPSULE [Concomitant]
     Dates: start: 20190905
  3. MYCOPHENOLIC [Suspect]
     Active Substance: MYCOPHENOLIC ACID
     Route: 048
     Dates: start: 20190905
  4. ENVARSUS XR [Suspect]
     Active Substance: TACROLIMUS
     Indication: HEART TRANSPLANT
     Route: 048
     Dates: start: 20191201

REACTIONS (5)
  - Tremor [None]
  - Gastrointestinal pain [None]
  - Decreased appetite [None]
  - Flatulence [None]
  - Abdominal distension [None]

NARRATIVE: CASE EVENT DATE: 20191213
